FAERS Safety Report 13909254 (Version 1)
Quarter: 2017Q3

REPORT INFORMATION
  Report Type: Spontaneous
  Country: PT (occurrence: PT)
  Receive Date: 20170828
  Receipt Date: 20170828
  Transmission Date: 20171127
  Serious: Yes (Other)
  Sender: FDA-Public Use
  Company Number: PT-ABBVIE-17K-130-2079454-00

PATIENT
  Age: 7 Year
  Sex: Female

DRUGS (2)
  1. HUMIRA [Suspect]
     Active Substance: ADALIMUMAB
     Indication: COLITIS ULCERATIVE
     Route: 058
     Dates: start: 201612, end: 2017
  2. HUMIRA [Suspect]
     Active Substance: ADALIMUMAB
     Indication: COLITIS ULCERATIVE
     Route: 058
     Dates: start: 20170601

REACTIONS (3)
  - Product substitution issue [Not Recovered/Not Resolved]
  - Injection site oedema [Not Recovered/Not Resolved]
  - Product dosage form issue [Not Recovered/Not Resolved]

NARRATIVE: CASE EVENT DATE: 201706
